FAERS Safety Report 5488739-0 (Version None)
Quarter: 2007Q4

REPORT INFORMATION
  Report Type: 
  Country: None (occurrence: None)
  Receive Date: 20071016
  Receipt Date: 20071002
  Transmission Date: 20080405
  Serious: Yes (Death)
  Sender: FDA-Public Use
  Company Number: S07-IRL-03519-01

PATIENT
  Age: 58 Year
  Sex: Male

DRUGS (2)
  1. LEXAPRO [Suspect]
     Indication: DEPRESSION
     Dosage: 10 MG QD PO
     Route: 048
     Dates: start: 20060919
  2. XANAX [Concomitant]

REACTIONS (8)
  - AGITATION [None]
  - COMPLETED SUICIDE [None]
  - CONDITION AGGRAVATED [None]
  - CONTUSION [None]
  - GUN SHOT WOUND [None]
  - INCORRECT DOSE ADMINISTERED [None]
  - SKULL FRACTURE [None]
  - TRAUMATIC BRAIN INJURY [None]
